FAERS Safety Report 4290427-3 (Version None)
Quarter: 2004Q1

REPORT INFORMATION
  Report Type: 
  Country: None (occurrence: None)
  Receive Date: 20040209
  Receipt Date: 20040123
  Transmission Date: 20041129
  Serious: Yes (Hospitalization)
  Sender: FDA-Public Use
  Company Number: DSA_23940_2004

PATIENT
  Age: 39 Year
  Sex: Male

DRUGS (6)
  1. DILTIAZEM [Suspect]
     Dosage: 180 MG Q DAY PO
     Route: 048
     Dates: start: 20031020, end: 20031023
  2. DEPAKENE [Suspect]
     Dosage: 3000 MG Q DAY PO
     Route: 048
     Dates: start: 20031014, end: 20031024
  3. OXACILLIN [Suspect]
     Indication: PNEUMONIA ASPIRATION
     Dosage: 4 G Q DAY IV
     Route: 042
     Dates: start: 20031019, end: 20031023
  4. RIVOTRIL [Suspect]
     Dosage: 2 MG Q DAY
     Dates: start: 20031014
  5. TRILEPTAL [Suspect]
     Dates: start: 20031020
  6. PERFALGAN [Suspect]
     Dosage: 10 MG/ML Q DAY IV
     Route: 042
     Dates: start: 20031020

REACTIONS (2)
  - PNEUMONIA ASPIRATION [None]
  - RASH MACULAR [None]
